FAERS Safety Report 9049151 (Version 1)
Quarter: 2013Q1

REPORT INFORMATION
  Report Type: Spontaneous
  Country: US (occurrence: None)
  Receive Date: 20130130
  Receipt Date: 20130130
  Transmission Date: 20140127
  Serious: Yes (Life-Threatening, Hospitalization)
  Sender: FDA-Public Use
  Company Number: None

PATIENT
  Age: 67 Year
  Sex: Female
  Weight: 77.11 kg

DRUGS (11)
  1. FLECAINIDE [Suspect]
     Indication: ATRIAL FIBRILLATION
     Dosage: 1 TABLET??10/26 2X, 10/27?10/28??TOTAL OF 5 TABLET
     Route: 048
  2. LEVOTHROID [Concomitant]
  3. LOPID [Concomitant]
  4. DILTIAZEM HCL [Concomitant]
  5. GLUCOTROL [Concomitant]
  6. EXTRA STRENGTH TYLENOL [Concomitant]
  7. TENORMIN [Concomitant]
  8. GLUCOPHAGE [Concomitant]
  9. HYDROCORTISONE [Concomitant]
  10. NEURONTIN [Concomitant]
  11. LASIX [Concomitant]

REACTIONS (3)
  - Heart rate decreased [None]
  - Feeling abnormal [None]
  - Asthenia [None]
